FAERS Safety Report 6731958-3 (Version None)
Quarter: 2010Q2

REPORT INFORMATION
  Report Type: 
  Country: None (occurrence: None)
  Receive Date: 20100519
  Receipt Date: 20100507
  Transmission Date: 20101027
  Serious: Yes (Other)
  Sender: FDA-Public Use
  Company Number: CH-AMGEN-QUU411842

PATIENT

DRUGS (2)
  1. ENBREL [Suspect]
     Indication: DRUG USE FOR UNKNOWN INDICATION
     Dosage: SINCE APPROXIMATELY 1 YEAR AT UNKNOWN DOSAGE
     Dates: start: 20090101
  2. METHOTREXATE [Suspect]
     Dosage: START DATE AND DOSAGE UNKNOWN

REACTIONS (2)
  - VISUAL ACUITY REDUCED [None]
  - VISUAL FIELD DEFECT [None]
